FAERS Safety Report 13900904 (Version 2)
Quarter: 2017Q4

REPORT INFORMATION
  Report Type: Spontaneous
  Country: PT (occurrence: PT)
  Receive Date: 20170824
  Receipt Date: 20171026
  Transmission Date: 20180320
  Serious: Yes (Other)
  Sender: FDA-Public Use
  Company Number: PT-ROCHE-1982971

PATIENT
  Sex: Female
  Weight: 78 kg

DRUGS (2)
  1. LOMUSTINE. [Suspect]
     Active Substance: LOMUSTINE
     Indication: GLIOBLASTOMA
     Route: 065
  2. AVASTIN [Suspect]
     Active Substance: BEVACIZUMAB
     Indication: GLIOBLASTOMA
     Route: 065

REACTIONS (3)
  - Fracture [Recovered/Resolved]
  - Intentional product use issue [Unknown]
  - Off label use [Unknown]

NARRATIVE: CASE EVENT DATE: 201706
